FAERS Safety Report 5635460-1 (Version None)
Quarter: 2008Q1

REPORT INFORMATION
  Report Type: 
  Country: None (occurrence: None)
  Receive Date: 20080222
  Receipt Date: 20080213
  Transmission Date: 20080703
  Serious: Yes (Other)
  Sender: FDA-Public Use
  Company Number: US-PFIZER INC-2008014090

PATIENT
  Sex: Male
  Weight: 110.9 kg

DRUGS (8)
  1. CELEBREX [Suspect]
     Indication: ARTHRALGIA
     Dosage: TEXT:200 MG  EVERY DAY
     Dates: start: 20070301, end: 20071120
  2. NAPROXEN [Suspect]
     Indication: BACK PAIN
     Dates: start: 20070813, end: 20071120
  3. ZYRTEC [Concomitant]
  4. TRICOR [Concomitant]
  5. SIMVASTATIN [Concomitant]
  6. METOPROLOL TARTRATE [Concomitant]
  7. FISH OIL [Concomitant]
  8. MIRTAZAPINE [Concomitant]

REACTIONS (2)
  - HYPERTENSION [None]
  - RENAL FAILURE CHRONIC [None]
